FAERS Safety Report 10800933 (Version 2)
Quarter: 2015Q1

REPORT INFORMATION
  Report Type: Spontaneous
  Country: US (occurrence: US)
  Receive Date: 20150216
  Receipt Date: 20150216
  Transmission Date: 20150721
  Serious: No
  Sender: FDA-Public Use
  Company Number: US-ALLERGAN-1419557US

PATIENT
  Age: 50 Year
  Sex: Female

DRUGS (3)
  1. RESTASIS [Suspect]
     Active Substance: CYCLOSPORINE
     Indication: PRODUCT USED FOR UNKNOWN INDICATION
     Dosage: 2 GTT, ONE TO TWO TIMES DAILY
     Route: 047
     Dates: start: 2006
  2. ELESTAT [Concomitant]
     Active Substance: EPINASTINE HYDROCHLORIDE
     Dosage: UNK UNK, PRN
  3. LEVOTHYROXINE [Concomitant]
     Active Substance: LEVOTHYROXINE
     Dosage: 0.137 MCG, UNK
     Route: 048
     Dates: start: 1994

REACTIONS (3)
  - Conjunctival irritation [Unknown]
  - Inappropriate schedule of drug administration [Unknown]
  - Eye pruritus [Unknown]
